FAERS Safety Report 5385704-9 (Version None)
Quarter: 2007Q3

REPORT INFORMATION
  Report Type: 
  Country: None (occurrence: None)
  Receive Date: 20070712
  Receipt Date: 20070703
  Transmission Date: 20080115
  Serious: Yes (Other)
  Sender: FDA-Public Use
  Company Number: HQWYE896603JUL07

PATIENT
  Age: 16 Year
  Sex: Female

DRUGS (1)
  1. PANTOPRAZOLE SODIUM [Suspect]
     Indication: ABDOMINAL PAIN UPPER
     Dosage: 10 MG, 20 MG AND 40 MG - FREQUENCY UNSPECIFIED
     Route: 048

REACTIONS (1)
  - ANAPHYLACTIC REACTION [None]
